FAERS Safety Report 20819363 (Version 1)
Quarter: 2022Q2

REPORT INFORMATION
  Report Type: Spontaneous
  Country: US (occurrence: None)
  Receive Date: 20220511
  Receipt Date: 20220511
  Transmission Date: 20220720
  Serious: Yes (Other)
  Sender: FDA-Public Use
  Company Number: None

PATIENT
  Age: 28 Year
  Sex: Female
  Weight: 69.75 kg

DRUGS (15)
  1. KETAMINE [Suspect]
     Active Substance: KETAMINE
     Indication: Pain
     Dosage: OTHER QUANTITY : 24 SPRAY(S);?FREQUENCY : 4 TIMES A DAY;?
     Route: 055
     Dates: start: 20190501, end: 20220502
  2. TRAZODONE [Concomitant]
     Active Substance: TRAZODONE HYDROCHLORIDE
  3. PROPRANOLOL [Concomitant]
     Active Substance: PROPRANOLOL HYDROCHLORIDE
  4. pyridiostigmine [Concomitant]
  5. intranasal ketamine [Concomitant]
  6. IM Cyanocobalamin [Concomitant]
  7. MODAFINIL [Concomitant]
     Active Substance: MODAFINIL
  8. RIZATRIPTAN [Concomitant]
     Active Substance: RIZATRIPTAN
  9. CYCLOBENZAPRINE [Concomitant]
     Active Substance: CYCLOBENZAPRINE
  10. MYRBETRIQ [Concomitant]
     Active Substance: MIRABEGRON
  11. DICYCLOMINE [Concomitant]
     Active Substance: DICYCLOMINE HYDROCHLORIDE
  12. Famodatine [Concomitant]
  13. ZYRTEC [Concomitant]
     Active Substance: CETIRIZINE HYDROCHLORIDE
  14. VITAMINS [Concomitant]
     Active Substance: VITAMINS
  15. Slow Fe Iron [Concomitant]

REACTIONS (4)
  - Angioedema [None]
  - Urticaria [None]
  - Nasal discomfort [None]
  - Application site pain [None]

NARRATIVE: CASE EVENT DATE: 20220502
